FAERS Safety Report 9771898 (Version 1)
Quarter: 2013Q4

REPORT INFORMATION
  Report Type: Spontaneous
  Country: GB (occurrence: GB)
  Receive Date: 20131219
  Receipt Date: 20131219
  Transmission Date: 20140711
  Serious: Yes (Other)
  Sender: FDA-Public Use
  Company Number: GB-MERCK-1312GBR006638

PATIENT
  Age: 34 Year
  Sex: Male

DRUGS (1)
  1. PROPECIA 1MG FILM-COATED TABLET [Suspect]
     Indication: ANDROGENETIC ALOPECIA
     Dosage: 1 MG, QD
     Route: 048
     Dates: start: 201301, end: 20131129

REACTIONS (4)
  - Paraesthesia [Unknown]
  - Depression [Unknown]
  - Depressed mood [Unknown]
  - Semen volume decreased [Unknown]
